FAERS Safety Report 11394831 (Version 2)
Quarter: 2016Q3

REPORT INFORMATION
  Report Type: Spontaneous
  Country: US (occurrence: US)
  Receive Date: 20150819
  Receipt Date: 20160829
  Transmission Date: 20161109
  Serious: Yes (Hospitalization)
  Sender: FDA-Public Use
  Company Number: US-SA-2015SA122027

PATIENT
  Age: 81 Year
  Sex: Female
  Weight: 81.64 kg

DRUGS (1)
  1. AMBIEN [Suspect]
     Active Substance: ZOLPIDEM TARTRATE
     Indication: INSOMNIA
     Route: 048
     Dates: end: 200803

REACTIONS (5)
  - Pain [Recovered/Resolved]
  - Gait disturbance [Recovered/Resolved]
  - Compression fracture [Recovered/Resolved]
  - Open fracture [Recovered/Resolved]
  - Amnesia [Recovered/Resolved]
